FAERS Safety Report 6054735-8 (Version None)
Quarter: 2009Q1

REPORT INFORMATION
  Report Type: 
  Country: None (occurrence: None)
  Receive Date: 20090128
  Receipt Date: 20090120
  Transmission Date: 20090719
  Serious: Yes (Hospitalization)
  Sender: FDA-Public Use
  Company Number: US-AMGEN-QUU329458

PATIENT
  Sex: Male

DRUGS (1)
  1. ENBREL [Suspect]
     Indication: RHEUMATOID ARTHRITIS
     Route: 058
     Dates: start: 20050815

REACTIONS (7)
  - ABDOMINAL PAIN [None]
  - DRY MOUTH [None]
  - INCREASED TENDENCY TO BRUISE [None]
  - JAUNDICE [None]
  - ORAL CANDIDIASIS [None]
  - POST PROCEDURAL INFECTION [None]
  - REFLUX OESOPHAGITIS [None]
